FAERS Safety Report 4614648-2 (Version None)
Quarter: 2005Q2

REPORT INFORMATION
  Report Type: 
  Country: None (occurrence: None)
  Receive Date: 20050311
  Receipt Date: 20041122
  Transmission Date: 20051028
  Serious: No
  Sender: FDA-Public Use
  Company Number: 2004-BP-12476BP

PATIENT
  Age: 75 Year
  Sex: Female
  Weight: 64.4 kg

DRUGS (3)
  1. SPIRIVA [Suspect]
     Indication: CHRONIC OBSTRUCTIVE PULMONARY DISEASE
     Dosage: 18 MCG (18 MCG), IH
     Route: 055
     Dates: start: 20040701
  2. SPIRIVA [Suspect]
     Indication: CHRONIC OBSTRUCTIVE PULMONARY DISEASE
     Dosage: 18 MCG (18 MCG), IH
     Route: 055
     Dates: start: 20040701
  3. ADVAIR DISKUS (SERETIDE MITE) [Suspect]
     Indication: CHRONIC OBSTRUCTIVE PULMONARY DISEASE
     Dosage: SEE TEXT (50/500 BID), IH
     Route: 055
     Dates: start: 20040701

REACTIONS (2)
  - DRY MOUTH [None]
  - WEIGHT INCREASED [None]
